FAERS Safety Report 8191845-3 (Version None)
Quarter: 2012Q1

REPORT INFORMATION
  Report Type: 
  Country: None (occurrence: None)
  Receive Date: 20120307
  Receipt Date: 20120228
  Transmission Date: 20120608
  Serious: Yes (Other)
  Sender: FDA-Public Use
  Company Number: PHHY2011BR112487

PATIENT
  Sex: Male

DRUGS (6)
  1. AMLODIPINE BESYLATE [Concomitant]
  2. DIOVAN [Suspect]
     Indication: HYPERTENSION
     Dosage: 160 MG, UNK
  3. SIMVASTATIN [Concomitant]
  4. DIOVAN [Suspect]
     Dosage: 320 MG, DAILY
     Route: 048
  5. ATENOLOL [Concomitant]
  6. HYGROTON [Concomitant]

REACTIONS (7)
  - ANXIETY [None]
  - SKIN CANCER [None]
  - DEPRESSION [None]
  - DISTURBANCE IN ATTENTION [None]
  - COGNITIVE DISORDER [None]
  - MEMORY IMPAIRMENT [None]
  - MOOD ALTERED [None]
